FAERS Safety Report 10241127 (Version 1)
Quarter: 2014Q2

REPORT INFORMATION
  Report Type: Spontaneous
  Country: CH (occurrence: CH)
  Receive Date: 20140617
  Receipt Date: 20140617
  Transmission Date: 20141212
  Serious: Yes (Hospitalization)
  Sender: FDA-Public Use
  Company Number: CH-SA-2014SA078421

PATIENT
  Age: 44 Year
  Sex: Male

DRUGS (4)
  1. MYTELASE [Suspect]
     Indication: MYASTHENIA GRAVIS
     Route: 048
     Dates: start: 20140223
  2. MYTELASE [Suspect]
     Indication: MYASTHENIA GRAVIS
     Route: 048
     Dates: end: 20140306
  3. MESTINON [Suspect]
     Indication: OCULAR MYASTHENIA
     Route: 048
     Dates: start: 20140210
  4. MESTINON [Suspect]
     Indication: OCULAR MYASTHENIA
     Route: 048
     Dates: end: 20140217

REACTIONS (2)
  - Cholinergic syndrome [Recovered/Resolved]
  - Rash [Recovered/Resolved]
